FAERS Safety Report 21232478 (Version 1)
Quarter: 2022Q3

REPORT INFORMATION
  Report Type: Spontaneous
  Country: US (occurrence: None)
  Receive Date: 20220818
  Receipt Date: 20220818
  Transmission Date: 20221027
  Serious: Yes (Death)
  Sender: FDA-Public Use
  Company Number: None

PATIENT
  Age: 70 Year
  Sex: Male
  Weight: 78.93 kg

DRUGS (14)
  1. HYCAMTIN [Suspect]
     Active Substance: TOPOTECAN HYDROCHLORIDE
     Indication: Lung neoplasm malignant
     Dosage: FREQUENCY : DAILY;?
     Route: 048
     Dates: start: 202207, end: 20220818
  2. ATIVAN [Concomitant]
     Active Substance: LORAZEPAM
  3. CIPROFLOXACIN [Concomitant]
     Active Substance: CIPROFLOXACIN
  4. EZETIMIBE [Concomitant]
     Active Substance: EZETIMIBE
  5. FUROSEMIDE [Concomitant]
     Active Substance: FUROSEMIDE
  6. MAGNESIUM OXIDE [Concomitant]
     Active Substance: MAGNESIUM OXIDE
  7. METOPROLOL TARTRATE [Concomitant]
     Active Substance: METOPROLOL TARTRATE
  8. NORVASC [Concomitant]
     Active Substance: AMLODIPINE BESYLATE
  9. PERCOCET [Concomitant]
     Active Substance: ACETAMINOPHEN\OXYCODONE HYDROCHLORIDE
  10. PREDNISONE [Concomitant]
     Active Substance: PREDNISONE
  11. ROSUVASTATIN [Concomitant]
     Active Substance: ROSUVASTATIN
  12. SPIRIVA [Concomitant]
     Active Substance: TIOTROPIUM BROMIDE MONOHYDRATE
  13. Triple Omega-3 [Concomitant]
  14. VALACYCLOVIR [Concomitant]
     Active Substance: VALACYCLOVIR HYDROCHLORIDE

REACTIONS (1)
  - Death [None]
